FAERS Safety Report 7073995-8 (Version None)
Quarter: 2010Q4

REPORT INFORMATION
  Report Type: 
  Country: None (occurrence: None)
  Receive Date: 20101028
  Receipt Date: 20101028
  Transmission Date: 20110411
  Serious: No
  Sender: FDA-Public Use
  Company Number: None

PATIENT
  Age: 64 Year
  Sex: Male

DRUGS (2)
  1. VIDAZA [Suspect]
  2. REVLIMID [Suspect]

REACTIONS (7)
  - CHILLS [None]
  - CONTUSION [None]
  - COUGH [None]
  - MYALGIA [None]
  - PYREXIA [None]
  - RHINORRHOEA [None]
  - VOMITING [None]
